FAERS Safety Report 4959173-4 (Version None)
Quarter: 2006Q1

REPORT INFORMATION
  Report Type: 
  Country: None (occurrence: None)
  Receive Date: 20060127
  Receipt Date: 20041129
  Transmission Date: 20060701
  Serious: Yes (Hospitalization)
  Sender: FDA-Public Use
  Company Number: 04-10-1412

PATIENT
  Age: 50 Year
  Sex: Female

DRUGS (5)
  1. CLOZAPINE [Suspect]
     Dosage: 600MG HS, ORAL
     Route: 048
     Dates: start: 20040213
  2. PROVIGIL [Concomitant]
  3. LAMICTAL [Concomitant]
  4. ZYPREXA [Concomitant]
  5. TOPAMAX [Concomitant]

REACTIONS (1)
  - LABORATORY TEST ABNORMAL [None]
